FAERS Safety Report 17043339 (Version 1)
Quarter: 2019Q4

REPORT INFORMATION
  Report Type: Spontaneous
  Country: US (occurrence: US)
  Receive Date: 20191118
  Receipt Date: 20191118
  Transmission Date: 20200122
  Serious: No
  Sender: FDA-Public Use
  Company Number: US-PFIZER INC-2019495772

PATIENT
  Age: 60 Year
  Sex: Female

DRUGS (7)
  1. DILAUDID [Suspect]
     Active Substance: HYDROMORPHONE HYDROCHLORIDE
     Dosage: UNK
  2. LOPID [Suspect]
     Active Substance: GEMFIBROZIL
     Dosage: UNK
  3. TERCONAZOLE. [Suspect]
     Active Substance: TERCONAZOLE
     Dosage: (0.4%)
     Route: 067
  4. MONISTAT [Suspect]
     Active Substance: MICONAZOLE NITRATE
     Dosage: (3 COMBO PACK KIT)
  5. ZOMIG [Suspect]
     Active Substance: ZOLMITRIPTAN
     Dosage: UNK
  6. TERAZOL 3 [Suspect]
     Active Substance: TERCONAZOLE
     Dosage: UNK
     Route: 067
  7. TRICOR [ADENOSINE] [Suspect]
     Active Substance: ADENOSINE
     Dosage: UNK

REACTIONS (1)
  - Drug hypersensitivity [Unknown]
